FAERS Safety Report 8430617-9 (Version None)
Quarter: 2012Q2

REPORT INFORMATION
  Report Type: 
  Country: None (occurrence: None)
  Receive Date: 20120612
  Receipt Date: 20120525
  Transmission Date: 20120825
  Serious: No
  Sender: FDA-Public Use
  Company Number: US-ASTRAZENECA-2011SE17503

PATIENT
  Age: 52 Year
  Sex: Female

DRUGS (1)
  1. NEXIUM [Suspect]
     Route: 048

REACTIONS (6)
  - CHOKING SENSATION [None]
  - MALAISE [None]
  - DRUG INEFFECTIVE [None]
  - HYPERCHLORHYDRIA [None]
  - INTENTIONAL DRUG MISUSE [None]
  - ERUCTATION [None]
